FAERS Safety Report 10473235 (Version 8)
Quarter: 2015Q3

REPORT INFORMATION
  Report Type: Report from Study
  Country: US (occurrence: US)
  Receive Date: 20140924
  Receipt Date: 20150901
  Transmission Date: 20151125
  Serious: Yes (Other)
  Sender: FDA-Public Use
  Company Number: US-SA-2014SA123922

PATIENT
  Age: 63 Year
  Sex: Female
  Weight: 48.53 kg

DRUGS (8)
  1. GABAPENTIN. [Concomitant]
     Active Substance: GABAPENTIN
     Indication: MULTIPLE SCLEROSIS
     Dosage: START DATE: 15 YEARS
     Dates: start: 2000
  2. VALSARTAN. [Concomitant]
     Active Substance: VALSARTAN
     Indication: HYPERTENSION
     Dosage: START DATE: 5 YEARS
     Dates: start: 2010
  3. MODAFINIL. [Concomitant]
     Active Substance: MODAFINIL
     Indication: MULTIPLE SCLEROSIS
     Dosage: START DATE: 12 YEARS
     Dates: start: 2003
  4. AUBAGIO [Suspect]
     Active Substance: TERIFLUNOMIDE
     Indication: MULTIPLE SCLEROSIS
     Route: 048
     Dates: start: 201410
  5. AUBAGIO [Suspect]
     Active Substance: TERIFLUNOMIDE
     Indication: MULTIPLE SCLEROSIS
     Route: 048
     Dates: end: 20150624
  6. CYCLOBENZAPRINE [Concomitant]
     Active Substance: CYCLOBENZAPRINE
     Indication: MULTIPLE SCLEROSIS
     Dosage: START DATE: 2 YEARS
     Dates: start: 2013
  7. AUBAGIO [Suspect]
     Active Substance: TERIFLUNOMIDE
     Indication: MULTIPLE SCLEROSIS
     Route: 048
     Dates: start: 20140819
  8. HYDROCODONE [Concomitant]
     Active Substance: HYDROCODONE
     Indication: MULTIPLE SCLEROSIS
     Dosage: DOSE: 10-325 MG; START DATE: 20 YEARS
     Dates: start: 1995

REACTIONS (15)
  - Diarrhoea [Unknown]
  - Cough [Unknown]
  - Feeling abnormal [Not Recovered/Not Resolved]
  - Defaecation urgency [Recovering/Resolving]
  - Micturition urgency [Recovering/Resolving]
  - Visual impairment [Unknown]
  - Mass [Not Recovered/Not Resolved]
  - Confusional state [Not Recovered/Not Resolved]
  - Condition aggravated [Not Recovered/Not Resolved]
  - Bowel movement irregularity [Not Recovered/Not Resolved]
  - Abnormal faeces [Unknown]
  - Memory impairment [Not Recovered/Not Resolved]
  - Diplopia [Recovering/Resolving]
  - Pain [Not Recovered/Not Resolved]
  - Hair texture abnormal [Not Recovered/Not Resolved]

NARRATIVE: CASE EVENT DATE: 201412
